FAERS Safety Report 8019233-0 (Version None)
Quarter: 2011Q4

REPORT INFORMATION
  Report Type: 
  Country: None (occurrence: None)
  Receive Date: 20111227
  Receipt Date: 20111215
  Transmission Date: 20120403
  Serious: Yes (Other)
  Sender: FDA-Public Use
  Company Number: 11-095

PATIENT
  Age: 70 Year
  Sex: Female
  Weight: 62.5964 kg

DRUGS (1)
  1. TERBINAFINE HYDROCHLORIDE [Suspect]
     Indication: ONYCHOMYCOSIS
     Dosage: 250 MG;QD;PO
     Route: 048
     Dates: start: 20110629, end: 20110918

REACTIONS (4)
  - SINUS OPERATION [None]
  - COUGH [None]
  - OROPHARYNGEAL PAIN [None]
  - CHOKING SENSATION [None]
